FAERS Safety Report 20440303 (Version 1)
Quarter: 2022Q1

REPORT INFORMATION
  Report Type: Spontaneous
  Country: US (occurrence: None)
  Receive Date: 20220206
  Receipt Date: 20220206
  Transmission Date: 20220423
  Serious: Yes (unspecified)
  Sender: FDA-Public Use
  Company Number: None

PATIENT
  Age: 41 Year
  Sex: Female
  Weight: 114.3 kg

DRUGS (1)
  1. ZYRTEC [Suspect]
     Active Substance: CETIRIZINE HYDROCHLORIDE
     Indication: Nasal septal operation
     Dates: start: 20150420

REACTIONS (5)
  - Burning sensation [None]
  - Pruritus [None]
  - Mood altered [None]
  - Depression [None]
  - Therapy change [None]

NARRATIVE: CASE EVENT DATE: 20220202
